FAERS Safety Report 17928043 (Version 1)
Quarter: 2020Q2

REPORT INFORMATION
  Report Type: Spontaneous
  Country: US (occurrence: US)
  Receive Date: 20200622
  Receipt Date: 20200622
  Transmission Date: 20200714
  Serious: No
  Sender: FDA-Public Use
  Company Number: US-AKRON, INC.-2086520

PATIENT
  Sex: Female

DRUGS (1)
  1. KETOROLAC TROMETHAMINE SOLUTION [Suspect]
     Active Substance: KETOROLAC TROMETHAMINE
     Route: 047

REACTIONS (2)
  - Drug ineffective [Not Recovered/Not Resolved]
  - Eye irritation [Not Recovered/Not Resolved]
